FAERS Safety Report 12807115 (Version 1)
Quarter: 2016Q4

REPORT INFORMATION
  Report Type: Spontaneous
  Country: US (occurrence: US)
  Receive Date: 20161004
  Receipt Date: 20161004
  Transmission Date: 20170207
  Serious: No
  Sender: FDA-Public Use
  Company Number: US-JNJFOC-20160913015

PATIENT
  Age: 41 Year
  Sex: Female
  Weight: 63.5 kg

DRUGS (3)
  1. WOMENS ROGAINE [Suspect]
     Active Substance: MINOXIDIL
     Indication: ALOPECIA
     Route: 061
  2. WOMENS ROGAINE [Suspect]
     Active Substance: MINOXIDIL
     Route: 061
  3. DEPO-PROVERA [Concomitant]
     Active Substance: MEDROXYPROGESTERONE ACETATE
     Indication: CONTRACEPTION
     Dosage: 1/2 TUBE, ONE MONTH
     Route: 065

REACTIONS (4)
  - Skin lesion [Recovered/Resolved]
  - Product use issue [Recovered/Resolved]
  - Intentional product misuse [Recovered/Resolved]
  - Wrong technique in product usage process [Recovered/Resolved]
